FAERS Safety Report 23521821 (Version 1)
Quarter: 2024Q1

REPORT INFORMATION
  Report Type: Spontaneous
  Country: PL (occurrence: PL)
  Receive Date: 20240214
  Receipt Date: 20240214
  Transmission Date: 20240410
  Serious: Yes (Death)
  Sender: FDA-Public Use
  Company Number: PL-B.Braun Medical Inc.-2153133

PATIENT
  Age: 58 Year
  Sex: Male
  Weight: 77 kg

DRUGS (6)
  1. ACETAMINOPHEN [Suspect]
     Active Substance: ACETAMINOPHEN
     Route: 042
     Dates: start: 20240112, end: 20240116
  2. CLEMASTINE [Concomitant]
     Active Substance: CLEMASTINE
  3. HYDROKORTISON [Concomitant]
  4. FUROSEMIDE [Concomitant]
     Active Substance: FUROSEMIDE
  5. IMIPENEM [Concomitant]
     Active Substance: IMIPENEM
  6. MORPHINE [Concomitant]
     Active Substance: MORPHINE

REACTIONS (3)
  - Cardiac arrest [Fatal]
  - Toxic epidermal necrolysis [Fatal]
  - Cardio-respiratory arrest [Fatal]
